FAERS Safety Report 23495186 (Version 1)
Quarter: 2024Q1

REPORT INFORMATION
  Report Type: Spontaneous
  Country: CN (occurrence: None)
  Receive Date: 20240207
  Receipt Date: 20240207
  Transmission Date: 20240409
  Serious: Yes (Other)
  Sender: FDA-Public Use
  Company Number: 2024A028181

PATIENT
  Age: 19573 Day
  Sex: Male
  Weight: 53 kg

DRUGS (2)
  1. ROSUVASTATIN CALCIUM [Suspect]
     Active Substance: ROSUVASTATIN CALCIUM
     Indication: Acute myocardial infarction
     Route: 048
     Dates: start: 20240108, end: 20240109
  2. EZETIMIBE [Suspect]
     Active Substance: EZETIMIBE
     Indication: Acute myocardial infarction
     Dates: start: 20240108, end: 20240109

REACTIONS (2)
  - Drug-induced liver injury [Unknown]
  - Hepatic enzyme increased [Unknown]

NARRATIVE: CASE EVENT DATE: 20240109
